FAERS Safety Report 9558365 (Version 3)
Quarter: 2013Q4

REPORT INFORMATION
  Report Type: Report from Study
  Country: JP (occurrence: JP)
  Receive Date: 20130926
  Receipt Date: 20131114
  Transmission Date: 20140711
  Serious: Yes (Death, Life-Threatening, Hospitalization, Other)
  Sender: FDA-Public Use
  Company Number: JP-TAKEDA-2013TJP001177

PATIENT
  Age: 86 Year
  Sex: Female
  Weight: 45 kg

DRUGS (15)
  1. ALOGLIPTIN [Suspect]
     Indication: TYPE 2 DIABETES MELLITUS
     Dosage: 25 MG, QD
     Route: 048
     Dates: start: 20111213, end: 20120122
  2. ALOGLIPTIN [Suspect]
     Dosage: 25 MG, QD
     Route: 048
     Dates: start: 20120325, end: 20120402
  3. METGLUCO [Concomitant]
     Indication: TYPE 2 DIABETES MELLITUS
     Dosage: 750 MG, 1 DAYS
     Route: 048
     Dates: start: 20111213
  4. SEIBULE [Concomitant]
     Indication: TYPE 2 DIABETES MELLITUS
     Dosage: 150 MG, 1 DAYS
     Route: 048
     Dates: start: 20111213
  5. ANPLAG [Concomitant]
     Dosage: 300 MG, 1 DAYS
     Route: 048
     Dates: start: 20111212, end: 20120417
  6. ALDACTONE-A [Concomitant]
     Dosage: 25 MG, 1 DAY
     Route: 048
     Dates: start: 20111212
  7. MAGMITT [Concomitant]
     Dosage: 990 MG, 1 DAYS
     Route: 048
     Dates: start: 20111212
  8. YODEL S [Concomitant]
     Dosage: 240 MG, 1 DAYS
     Route: 048
     Dates: start: 20111212
  9. ARTIST [Concomitant]
     Dosage: 1.25 MG, 1 DAYS
     Route: 048
     Dates: start: 20111212, end: 20120402
  10. RIVASTACH [Concomitant]
     Dosage: 18 MG, 1 DAYS
     Route: 062
     Dates: start: 20111220
  11. MIRCERA [Concomitant]
     Dosage: 50 ?G,1 DAYS
     Route: 042
     Dates: start: 20120328
  12. PLAVIX [Concomitant]
     Dosage: 75 MG, 1 DAYS
     Route: 048
     Dates: start: 20120402
  13. THYRADIN-S [Concomitant]
     Dosage: 50 ?G, 1 DAYS
     Route: 048
     Dates: start: 20120402
  14. SIGMART [Concomitant]
     Dosage: 15 MG, 1 DAYS
     Route: 048
     Dates: start: 20120402
  15. LUPRAC [Concomitant]
     Dosage: 8 MG,1 DAYS
     Route: 048
     Dates: start: 20120402

REACTIONS (4)
  - Dehydration [Fatal]
  - Myocardial infarction [Fatal]
  - Myocardial infarction [Not Recovered/Not Resolved]
  - Atrial fibrillation [Not Recovered/Not Resolved]
